FAERS Safety Report 8622678-9 (Version None)
Quarter: 2012Q3

REPORT INFORMATION
  Report Type: 
  Country: None (occurrence: None)
  Receive Date: 20120827
  Receipt Date: 20120820
  Transmission Date: 20120928
  Serious: Yes (Other)
  Sender: FDA-Public Use
  Company Number: US-JNJFOC-20120809169

PATIENT
  Sex: Male
  Weight: 46.8 kg

DRUGS (6)
  1. REMICADE [Suspect]
     Indication: INFLAMMATORY BOWEL DISEASE
     Route: 042
     Dates: start: 20111209
  2. CALCIUM CARBONATE [Concomitant]
  3. ZINC OXIDE [Concomitant]
  4. GRIS-PEG [Concomitant]
  5. LAMISIL [Concomitant]
  6. ANTIFUNGAL CREAM [Concomitant]

REACTIONS (1)
  - PSORIASIS [None]
